FAERS Safety Report 20493173 (Version 7)
Quarter: 2022Q2

REPORT INFORMATION
  Report Type: Report from Study
  Country: HU (occurrence: HU)
  Receive Date: 20220220
  Receipt Date: 20220614
  Transmission Date: 20220721
  Serious: Yes (Death, Other)
  Sender: FDA-Public Use
  Company Number: HU-NOVARTISPH-NVSC2022HU036200

PATIENT
  Age: 77 Year
  Sex: Female
  Weight: 78 kg

DRUGS (3)
  1. KISQALI [Suspect]
     Active Substance: RIBOCICLIB
     Indication: Breast cancer
     Dosage: 600 MG
     Route: 048
     Dates: start: 20220210, end: 20220216
  2. PANTOPRAZOLE [Suspect]
     Active Substance: PANTOPRAZOLE
     Indication: Product used for unknown indication
     Dosage: 40 MG
     Route: 048
     Dates: start: 20220216
  3. FUROSEMIDE [Concomitant]
     Active Substance: FUROSEMIDE
     Indication: Product used for unknown indication
     Route: 065

REACTIONS (34)
  - Pneumonia [Fatal]
  - Tachypnoea [Fatal]
  - COVID-19 [Fatal]
  - Suffocation feeling [Fatal]
  - Respiration abnormal [Fatal]
  - Oxygen consumption increased [Fatal]
  - Respiratory failure [Fatal]
  - Electrocardiogram QT prolonged [Unknown]
  - Myocardial ischaemia [Unknown]
  - Pleural effusion [Unknown]
  - Metastases to lymph nodes [Unknown]
  - Metastases to lung [Unknown]
  - Metastases to bone [Unknown]
  - Tachycardia [Unknown]
  - Gastrointestinal disorder [Unknown]
  - Decreased appetite [Unknown]
  - Endocrine disorder [Unknown]
  - Dyschezia [Unknown]
  - Pollakiuria [Unknown]
  - Hypertension [Unknown]
  - Drug hypersensitivity [Unknown]
  - Atelectasis [Unknown]
  - Tongue dry [Unknown]
  - Blood glucose increased [Unknown]
  - Hepatomegaly [Unknown]
  - Gastrointestinal sounds abnormal [Unknown]
  - Spleen disorder [Unknown]
  - Pallor [Unknown]
  - Arthropathy [Unknown]
  - Inflammation [Unknown]
  - Asthenia [Unknown]
  - Back pain [Unknown]
  - Tongue coated [Unknown]
  - Abnormal faeces [Unknown]

NARRATIVE: CASE EVENT DATE: 20220214
